FAERS Safety Report 20851259 (Version 6)
Quarter: 2022Q3

REPORT INFORMATION
  Report Type: Spontaneous
  Country: US (occurrence: US)
  Receive Date: 20220519
  Receipt Date: 20220802
  Transmission Date: 20221027
  Serious: Yes (Hospitalization, Other)
  Sender: FDA-Public Use
  Company Number: US-BIOCODEX2-2022000415

PATIENT

DRUGS (15)
  1. DIACOMIT [Suspect]
     Active Substance: STIRIPENTOL
     Indication: Severe myoclonic epilepsy of infancy
     Dosage: 250MG, TAKE 125MG BY MOUTH TWICE A DAY DISSOLVE EACH PACKET IN 10ML OF WATER AND DRINK 5ML BY MOUTH
     Route: 048
     Dates: start: 20220401
  2. DIACOMIT [Suspect]
     Active Substance: STIRIPENTOL
     Dosage: UNK, QD
     Route: 065
     Dates: start: 202205
  3. DIACOMIT [Suspect]
     Active Substance: STIRIPENTOL
     Dosage: 250 MG, TAKE 125 MG BY MOUTH TWICE A DAY
     Route: 048
     Dates: start: 20211231
  4. DIACOMIT [Suspect]
     Active Substance: STIRIPENTOL
     Dosage: MIX EACH PACKET WITH 10ML WATER. TAKE 5ML (125MG) EACH AM AND 10ML (250MG) EACH PM. DISCARD EXTRA
     Route: 065
  5. CLOBAZAM [Concomitant]
     Active Substance: CLOBAZAM
     Indication: Severe myoclonic epilepsy of infancy
     Dosage: 5MG ORAL SUSPENSION
     Route: 048
  6. CLOBAZAM [Concomitant]
     Active Substance: CLOBAZAM
     Dosage: 5 MG
     Route: 048
     Dates: start: 202109
  7. CLOBAZAM [Concomitant]
     Active Substance: CLOBAZAM
     Dosage: 10MG AT NIGHT
     Route: 048
     Dates: start: 20220616
  8. OFLOXACIN [Concomitant]
     Active Substance: OFLOXACIN
     Indication: Product used for unknown indication
     Route: 065
  9. CANNABIDIOL [Concomitant]
     Active Substance: CANNABIDIOL
     Indication: Product used for unknown indication
     Route: 065
  10. DIAZEPAM [Concomitant]
     Active Substance: DIAZEPAM
     Indication: Product used for unknown indication
     Route: 065
  11. MIDAZOLAM HYDROCHLORIDE [Concomitant]
     Active Substance: MIDAZOLAM HYDROCHLORIDE
     Indication: Product used for unknown indication
     Route: 065
  12. EPIDIOLEX [Concomitant]
     Active Substance: CANNABIDIOL
     Indication: Product used for unknown indication
     Route: 065
  13. TYLENOL [Concomitant]
     Active Substance: ACETAMINOPHEN
     Indication: Product used for unknown indication
     Route: 065
  14. ONFI [Concomitant]
     Active Substance: CLOBAZAM
     Indication: Severe myoclonic epilepsy of infancy
     Dosage: 5MG IN THE MORNING AND 5MG AT NIGHT
     Route: 065
  15. ONFI [Concomitant]
     Active Substance: CLOBAZAM
     Dosage: 10MG OF ONFI AT NIGHT.
     Route: 065
     Dates: start: 20220616

REACTIONS (5)
  - Status epilepticus [Not Recovered/Not Resolved]
  - Seizure [Recovered/Resolved]
  - Non-24-hour sleep-wake disorder [Unknown]
  - Gait disturbance [Not Recovered/Not Resolved]
  - Decreased appetite [Unknown]

NARRATIVE: CASE EVENT DATE: 20220403
